FAERS Safety Report 5737883-9 (Version None)
Quarter: 2008Q2

REPORT INFORMATION
  Report Type: 
  Country: None (occurrence: None)
  Receive Date: 20080514
  Receipt Date: 20080512
  Transmission Date: 20081010
  Serious: Yes (Hospitalization)
  Sender: FDA-Public Use
  Company Number: FI-WYE-G01532208

PATIENT
  Sex: Female

DRUGS (3)
  1. EFFEXOR [Suspect]
     Indication: DEPRESSION
     Route: 048
     Dates: start: 20070824, end: 20071105
  2. EFFEXOR [Suspect]
     Route: 048
     Dates: start: 20071106, end: 20071201
  3. EFFEXOR [Suspect]
     Route: 048
     Dates: start: 20071201

REACTIONS (1)
  - POLYDIPSIA [None]
